FAERS Safety Report 9435278 (Version 1)
Quarter: 2013Q3

REPORT INFORMATION
  Report Type: Spontaneous
  Country: US (occurrence: US)
  Receive Date: 20130801
  Receipt Date: 20130801
  Transmission Date: 20140515
  Serious: No
  Sender: FDA-Public Use
  Company Number: US-009507513-1307USA015978

PATIENT
  Age: 62 Year
  Sex: Female
  Weight: 34.47 kg

DRUGS (2)
  1. MIRALAX [Suspect]
     Indication: CONSTIPATION
     Dosage: UNK, QD
     Route: 048
     Dates: start: 20130705, end: 20130712
  2. MACROBID (NITROFURANTOIN) [Suspect]
     Indication: URINARY TRACT INFECTION
     Dosage: UNK, UNKNOWN
     Dates: start: 20130712

REACTIONS (1)
  - Diarrhoea [Not Recovered/Not Resolved]
